FAERS Safety Report 6917717-7 (Version None)
Quarter: 2010Q3

REPORT INFORMATION
  Report Type: 
  Country: None (occurrence: None)
  Receive Date: 20100810
  Receipt Date: 20100804
  Transmission Date: 20110219
  Serious: Yes (Hospitalization)
  Sender: FDA-Public Use
  Company Number: GB-WYE-G06504310

PATIENT
  Age: 55 Year
  Sex: Male

DRUGS (7)
  1. TYGACIL [Suspect]
     Indication: KLEBSIELLA INFECTION
     Route: 042
     Dates: start: 20100726, end: 20100801
  2. PENICILLIN G [Concomitant]
     Dosage: UNKNOWN
     Dates: start: 20100724, end: 20100724
  3. OMEPRAZOLE [Concomitant]
     Dosage: UNKNOWN
     Route: 048
  4. PREDNISOLONE [Concomitant]
     Dosage: UNKNOWN
     Route: 048
  5. COLISTIN [Concomitant]
     Dosage: UNKNOWN
  6. GENTAMICIN [Concomitant]
     Dosage: UNKNOWN
     Dates: start: 20100724, end: 20100724
  7. PARACETAMOL [Concomitant]
     Dosage: UNKNOWN
     Route: 048

REACTIONS (1)
  - HAEMOLYTIC ANAEMIA [None]
